FAERS Safety Report 9265989 (Version 1)
Quarter: 2013Q2

REPORT INFORMATION
  Report Type: Report from Study
  Country: MW (occurrence: MW)
  Receive Date: 20130501
  Receipt Date: 20130501
  Transmission Date: 20140414
  Serious: Yes (Other)
  Sender: FDA-Public Use
  Company Number: MW-ABBOTT-13P-100-1080204-00

PATIENT
  Sex: Female

DRUGS (9)
  1. ALUVIA [Suspect]
     Indication: MATERNAL EXPOSURE TIMING UNSPECIFIED
     Route: 064
  2. ALUVIA [Suspect]
     Route: 063
  3. ZIDOVUDINE W/LAMIVUDINE [Concomitant]
     Indication: MATERNAL EXPOSURE TIMING UNSPECIFIED
     Route: 064
  4. ZIDOVUDINE W/LAMIVUDINE [Concomitant]
     Route: 063
  5. FERROUS SULPHATE [Concomitant]
     Indication: MATERNAL EXPOSURE TIMING UNSPECIFIED
     Route: 064
  6. FERROUS SULPHATE [Concomitant]
     Route: 063
  7. COTRIMOXAZOLE [Concomitant]
     Indication: MATERNAL EXPOSURE TIMING UNSPECIFIED
     Route: 064
  8. COTRIMOXAZOLE [Concomitant]
     Route: 063
  9. PROMETHAZINE [Concomitant]
     Indication: MATERNAL EXPOSURE TIMING UNSPECIFIED
     Route: 064

REACTIONS (2)
  - Premature baby [Not Recovered/Not Resolved]
  - Foetal exposure during pregnancy [Unknown]
